FAERS Safety Report 21423865 (Version 1)
Quarter: 2022Q4

REPORT INFORMATION
  Report Type: Spontaneous
  Country: US (occurrence: US)
  Receive Date: 20221007
  Receipt Date: 20221007
  Transmission Date: 20230113
  Serious: No
  Sender: FDA-Public Use
  Company Number: US-ORGANON-O2209USA001343

PATIENT
  Age: 33 Year
  Sex: Female

DRUGS (3)
  1. REMERON [Suspect]
     Active Substance: MIRTAZAPINE
     Indication: Brief psychotic disorder, with postpartum onset
     Dosage: UNK
     Route: 048
     Dates: start: 2020
  2. HALOPERIDOL [Concomitant]
     Active Substance: HALOPERIDOL
     Indication: Brief psychotic disorder, with postpartum onset
     Dosage: UNK
     Dates: start: 2020
  3. OLANZAPINE [Concomitant]
     Active Substance: OLANZAPINE
     Indication: Brief psychotic disorder, with postpartum onset
     Dosage: UNK
     Dates: start: 2020

REACTIONS (2)
  - Maternal exposure during pregnancy [Recovered/Resolved]
  - Product use in unapproved indication [Unknown]

NARRATIVE: CASE EVENT DATE: 20200101
